FAERS Safety Report 9215133 (Version 1)
Quarter: 2013Q2

REPORT INFORMATION
  Report Type: Spontaneous
  Country: CA (occurrence: CA)
  Receive Date: 20130405
  Receipt Date: 20130405
  Transmission Date: 20140414
  Serious: Yes (Other)
  Sender: FDA-Public Use
  Company Number: PHHY2012CA117523

PATIENT
  Age: 43 Year
  Sex: Female

DRUGS (1)
  1. TASIGNA [Suspect]
     Indication: CHRONIC MYELOID LEUKAEMIA
     Dosage: 400 MG, BID
     Route: 048
     Dates: start: 200910

REACTIONS (11)
  - Cardiac murmur [Unknown]
  - Palpitations [Unknown]
  - Ventricular extrasystoles [Recovering/Resolving]
  - Swelling [Unknown]
  - Gastrointestinal disorder [Unknown]
  - Dyspepsia [Recovering/Resolving]
  - Myalgia [Unknown]
  - Arthralgia [Unknown]
  - Fatigue [Unknown]
  - Dyspnoea [Unknown]
  - Bronchitis [Unknown]
